FAERS Safety Report 22651591 (Version 1)
Quarter: 2023Q2

REPORT INFORMATION
  Report Type: Spontaneous
  Country: US (occurrence: US)
  Receive Date: 20230628
  Receipt Date: 20230628
  Transmission Date: 20230721
  Serious: No
  Sender: FDA-Public Use
  Company Number: US-CTI BIOPHARMA-2023US03448

PATIENT

DRUGS (12)
  1. VONJO [Suspect]
     Active Substance: PACRITINIB
     Indication: Myeloproliferative neoplasm
     Dosage: 200 MG, BID
     Route: 048
     Dates: start: 20230216
  2. VONJO [Suspect]
     Active Substance: PACRITINIB
     Dosage: 100 MG, BID
     Route: 048
     Dates: start: 20230216
  3. VONJO [Suspect]
     Active Substance: PACRITINIB
     Dosage: 100 MG, BID
     Route: 048
     Dates: start: 20230216
  4. SYNTHROID [Concomitant]
     Active Substance: LEVOTHYROXINE SODIUM
  5. VITAMIN B12 [Concomitant]
     Active Substance: CYANOCOBALAMIN
  6. VITAMINS [Concomitant]
     Active Substance: VITAMINS
  7. VITAMIN D3 [Concomitant]
     Active Substance: CHOLECALCIFEROL
  8. VITAMIN C [Concomitant]
     Active Substance: ASCORBIC ACID
  9. PROCHLORPERAZINE [Concomitant]
     Active Substance: PROCHLORPERAZINE
  10. ONDANSETRON [Concomitant]
     Active Substance: ONDANSETRON
  11. LORAZEPAM [Concomitant]
     Active Substance: LORAZEPAM
  12. BENZONATATE [Concomitant]
     Active Substance: BENZONATATE

REACTIONS (13)
  - Blood uric acid increased [Unknown]
  - Fatigue [Unknown]
  - Abdominal pain upper [Unknown]
  - Sleep disorder [Unknown]
  - Decreased appetite [Unknown]
  - Constipation [Recovered/Resolved]
  - Incorrect dose administered [Unknown]
  - Therapy change [Unknown]
  - Product dose omission issue [Unknown]
  - Off label use [Unknown]
  - Gastrooesophageal reflux disease [Unknown]
  - Haemoglobin abnormal [Unknown]
  - Nausea [Unknown]
